FAERS Safety Report 8912715 (Version 2)
Quarter: 2012Q4

REPORT INFORMATION
  Report Type: 
  Country: US (occurrence: US)
  Receive Date: 20121115
  Receipt Date: 20121231
  Transmission Date: 20130627
  Serious: Yes (Hospitalization, Other)
  Sender: FDA-Public Use
  Company Number: US-ABBOTT-12P-163-1005543-00

PATIENT

DRUGS (6)
  1. DEPAKOTE [Suspect]
     Indication: PRODUCT USED FOR UNKNOWN INDICATION
  2. ABILIFY [Interacting]
     Indication: PRODUCT USED FOR UNKNOWN INDICATION
  3. PAXIL [Interacting]
     Indication: PRODUCT USED FOR UNKNOWN INDICATION
     Dosage: Low dose
  4. KLONOPIN [Suspect]
     Indication: PRODUCT USED FOR UNKNOWN INDICATION
     Dosage: Low dose
  5. PERCOCET [Suspect]
     Indication: PRODUCT USED FOR UNKNOWN INDICATION
     Dosage: Up to 10 mg/day
  6. OXYCONTIN [Interacting]
     Indication: PRODUCT USED FOR UNKNOWN INDICATION

REACTIONS (21)
  - Bipolar disorder [Unknown]
  - Suicidal ideation [Unknown]
  - Generalised anxiety disorder [Unknown]
  - Skeletal injury [Unknown]
  - Economic problem [Unknown]
  - Upper respiratory tract infection [Unknown]
  - Somnolence [Recovered/Resolved]
  - Oxygen saturation decreased [Recovered/Resolved]
  - Miosis [Recovered/Resolved]
  - Respiratory rate decreased [Recovered/Resolved]
  - Pallor [Recovered/Resolved]
  - Unresponsive to stimuli [Recovered/Resolved]
  - Salivary hypersecretion [Recovered/Resolved]
  - Overdose [Recovered/Resolved]
  - Lung infiltration [Recovered/Resolved]
  - Aspiration [Recovered/Resolved]
  - Hypoxia [Recovering/Resolving]
  - Activities of daily living impaired [Recovering/Resolving]
  - Facial bones fracture [Unknown]
  - Drug interaction [Unknown]
  - Personality change [Recovering/Resolving]
